APPROVED DRUG PRODUCT: LEUCOVORIN CALCIUM PRESERVATIVE FREE
Active Ingredient: LEUCOVORIN CALCIUM
Strength: EQ 500MG BASE/VIAL
Dosage Form/Route: INJECTABLE;INJECTION
Application: A209110 | Product #001 | TE Code: AP
Applicant: SAGENT PHARMACEUTICALS INC
Approved: Oct 26, 2017 | RLD: No | RS: No | Type: RX